FAERS Safety Report 12900021 (Version 2)
Quarter: 2016Q4

REPORT INFORMATION
  Report Type: Spontaneous
  Country: US (occurrence: US)
  Receive Date: 20161101
  Receipt Date: 20161209
  Transmission Date: 20170207
  Serious: Yes (Hospitalization, Disabling, Other)
  Sender: FDA-Public Use
  Company Number: PHEH2016US027703

PATIENT
  Age: 63 Year
  Sex: Female
  Weight: 91.17 kg

DRUGS (6)
  1. LASIX [Concomitant]
     Active Substance: FUROSEMIDE
     Indication: OEDEMA
     Dosage: 80 MG, BID
     Route: 048
     Dates: start: 20160126
  2. ENTRESTO [Suspect]
     Active Substance: SACUBITRIL\VALSARTAN
     Indication: CARDIAC FAILURE CONGESTIVE
     Dosage: 50 MG (24/6MG), BID
     Route: 048
  3. ENTRESTO [Suspect]
     Active Substance: SACUBITRIL\VALSARTAN
     Dosage: 200 MG (97/103MG), BID
     Route: 048
     Dates: end: 20161007
  4. CARVEDILOL. [Concomitant]
     Active Substance: CARVEDILOL
     Indication: CARDIAC FAILURE CONGESTIVE
     Dosage: 6.25 OT, UNK
     Route: 048
     Dates: start: 20160224
  5. ENTRESTO [Suspect]
     Active Substance: SACUBITRIL\VALSARTAN
     Indication: CARDIAC FAILURE
     Dosage: 50 MG (24/26MG), UNK
     Route: 065
     Dates: start: 20160128
  6. LEVOXYL [Concomitant]
     Active Substance: LEVOTHYROXINE SODIUM
     Indication: THYROID DISORDER
     Dosage: 100 UG, UNK
     Route: 048
     Dates: start: 20160914

REACTIONS (8)
  - Secondary amyloidosis [Not Recovered/Not Resolved]
  - Blood alkaline phosphatase increased [Unknown]
  - Protein total decreased [Unknown]
  - Blood creatinine increased [Unknown]
  - Swelling [Unknown]
  - Aspartate aminotransferase increased [Unknown]
  - Dysgeusia [Unknown]
  - Blood urea increased [Unknown]

NARRATIVE: CASE EVENT DATE: 201609
